FAERS Safety Report 6505777-7 (Version None)
Quarter: 2009Q4

REPORT INFORMATION
  Report Type: 
  Country: None (occurrence: None)
  Receive Date: 20091201
  Receipt Date: 20081211
  Transmission Date: 20100525
  Serious: Yes (Hospitalization)
  Sender: FDA-Public Use
  Company Number: 2008-188359-NL

PATIENT
  Age: 31 Year
  Sex: Female
  Weight: 67.1 kg

DRUGS (1)
  1. NUVARING [Suspect]
     Indication: DRUG USE FOR UNKNOWN INDICATION
     Dates: start: 20080708, end: 20080101

REACTIONS (1)
  - DEEP VEIN THROMBOSIS [None]
